FAERS Safety Report 13651491 (Version 2)
Quarter: 2017Q3

REPORT INFORMATION
  Report Type: Report from Study
  Country: US (occurrence: US)
  Receive Date: 20170614
  Receipt Date: 20170712
  Transmission Date: 20171127
  Serious: Yes (Hospitalization)
  Sender: FDA-Public Use
  Company Number: US-SA-2017SA103607

PATIENT
  Age: 33 Year
  Sex: Male
  Weight: 60 kg

DRUGS (2)
  1. ISONIAZID. [Suspect]
     Active Substance: ISONIAZID
     Indication: PULMONARY TUBERCULOSIS
     Route: 065
     Dates: start: 20170117, end: 20170521
  2. RIFAPENTINE [Suspect]
     Active Substance: RIFAPENTINE
     Indication: PULMONARY TUBERCULOSIS
     Route: 048
     Dates: start: 20170117, end: 20170521

REACTIONS (1)
  - Pericardial effusion [Recovering/Resolving]

NARRATIVE: CASE EVENT DATE: 20170206
